FAERS Safety Report 6300906-2 (Version None)
Quarter: 2009Q3

REPORT INFORMATION
  Report Type: 
  Country: None (occurrence: None)
  Receive Date: 20090807
  Receipt Date: 20071119
  Transmission Date: 20100115
  Serious: Yes (Other)
  Sender: FDA-Public Use
  Company Number: US-ASTRAZENECA-2006UW21215

PATIENT
  Age: 16460 Day
  Sex: Female
  Weight: 126.1 kg

DRUGS (16)
  1. SEROQUEL [Suspect]
     Indication: SLEEP DISORDER
     Route: 048
     Dates: start: 20021230
  2. SEROQUEL [Suspect]
     Route: 048
     Dates: start: 20030101, end: 20060201
  3. APRALZOLAM [Concomitant]
     Dates: start: 20000101
  4. CHLORPHENIRAMINE MALEATE [Concomitant]
     Indication: PRURITUS
     Route: 048
     Dates: start: 20040519
  5. WYGESIC [Concomitant]
     Dosage: 1 TAB THREE TIMES A DAY AS NEEDED
     Route: 048
     Dates: start: 20040519
  6. ZOLOFT [Concomitant]
     Dosage: 50 MG - 100 MG DAILY
     Dates: start: 20021006
  7. TRAZODONE HCL [Concomitant]
     Dosage: 100 MG - 200 MG DAILY
     Dates: start: 20021006
  8. PRILOSEC [Concomitant]
     Dates: start: 20010201
  9. TYLENOL (CAPLET) [Concomitant]
     Indication: MUSCULOSKELETAL PAIN
     Route: 048
     Dates: start: 20010907
  10. NEXIUM [Concomitant]
     Dates: start: 20030806
  11. ATENOLOL [Concomitant]
     Dates: start: 20030806
  12. FERROUS SULFATE TAB [Concomitant]
     Dates: start: 20030806
  13. XANAX [Concomitant]
     Dosage: 0.50 MG- 1.0 MG DAILY
     Dates: start: 20030806
  14. SURMONTIL [Concomitant]
     Dates: start: 20030806
  15. NORVASC [Concomitant]
     Dates: start: 20041116
  16. CLONIDINE [Concomitant]
     Dates: start: 20051201

REACTIONS (6)
  - DIABETES MELLITUS INADEQUATE CONTROL [None]
  - DIABETIC KETOACIDOSIS [None]
  - DIABETIC RETINOPATHY [None]
  - NEPHROPATHY [None]
  - NEUROPATHY PERIPHERAL [None]
  - TYPE 1 DIABETES MELLITUS [None]
